FAERS Safety Report 12109877 (Version 2)
Quarter: 2016Q1

REPORT INFORMATION
  Report Type: Spontaneous
  Country: US (occurrence: US)
  Receive Date: 20160224
  Receipt Date: 20160304
  Transmission Date: 20160526
  Serious: Yes (Other)
  Sender: FDA-Public Use
  Company Number: US-BAYER-2016-029514

PATIENT
  Age: 54 Year
  Sex: Male

DRUGS (10)
  1. OMEPRAZOLE. [Concomitant]
     Active Substance: OMEPRAZOLE
  2. ATIVAN [Concomitant]
     Active Substance: LORAZEPAM
  3. OXYCODONE [Concomitant]
     Active Substance: OXYCODONE
  4. STIVARGA [Suspect]
     Active Substance: REGORAFENIB
     Indication: COLON CANCER
     Dosage: 160 MG, QD (TAKE FOUR TABLETS BY MOUTH EVERY DAY AS DIRECTED)
     Route: 048
     Dates: start: 20160209
  5. MAG-OX [Concomitant]
     Active Substance: MAGNESIUM OXIDE
  6. NORCO [Concomitant]
     Active Substance: ACETAMINOPHEN\HYDROCODONE BITARTRATE
  7. GAS RELIEF [Concomitant]
     Active Substance: DIMETHICONE
  8. METOPROLOL. [Concomitant]
     Active Substance: METOPROLOL
  9. DOXYCYCLINE. [Concomitant]
     Active Substance: DOXYCYCLINE
  10. DILAUDID [Concomitant]
     Active Substance: HYDROMORPHONE HYDROCHLORIDE

REACTIONS (10)
  - Nausea [Not Recovered/Not Resolved]
  - Decreased appetite [Not Recovered/Not Resolved]
  - Fatigue [Not Recovered/Not Resolved]
  - Bedridden [None]
  - Epistaxis [Recovering/Resolving]
  - Vomiting [Not Recovered/Not Resolved]
  - Vomiting [Not Recovered/Not Resolved]
  - Hypophagia [Not Recovered/Not Resolved]
  - Wrong technique in product usage process [None]
  - Malaise [None]

NARRATIVE: CASE EVENT DATE: 201602
